FAERS Safety Report 9850939 (Version 2)
Quarter: 2014Q1

REPORT INFORMATION
  Report Type: Spontaneous
  Country: US (occurrence: US)
  Receive Date: 20140128
  Receipt Date: 20140219
  Transmission Date: 20141002
  Serious: Yes (Other)
  Sender: FDA-Public Use
  Company Number: US-INCYTE CORPORATION-2014IN000143

PATIENT
  Sex: Female

DRUGS (5)
  1. JAKAFI [Suspect]
     Dosage: 5 MG, BID
     Route: 048
     Dates: start: 20120223
  2. KEPPRA [Suspect]
     Dosage: 1000 MG, UNK
  3. XANAX [Concomitant]
     Dosage: 0.25 MG
  4. CHILD^S TYLENOL [Concomitant]
     Dosage: 80 MG
  5. CHILD IBUPROFEN SUSPENSION [Concomitant]

REACTIONS (6)
  - Suicidal ideation [Unknown]
  - Mass [Unknown]
  - Convulsion [Unknown]
  - Radiculopathy [Unknown]
  - Hypoaesthesia [Unknown]
  - Dizziness [Unknown]
